FAERS Safety Report 23512609 (Version 1)
Quarter: 2024Q1

REPORT INFORMATION
  Report Type: Spontaneous
  Country: CZ (occurrence: CZ)
  Receive Date: 20240212
  Receipt Date: 20240212
  Transmission Date: 20240410
  Serious: Yes (Hospitalization, Other)
  Sender: FDA-Public Use
  Company Number: None

PATIENT
  Age: 78 Year
  Sex: Male
  Weight: 71 kg

DRUGS (5)
  1. YERVOY [Suspect]
     Active Substance: IPILIMUMAB
     Indication: Malignant melanoma
     Dosage: ADMINISTRATED 2 TIMES
     Route: 042
     Dates: start: 20231114, end: 20231212
  2. OPDIVO [Suspect]
     Active Substance: NIVOLUMAB
     Indication: Malignant melanoma
     Dosage: 2 TIMES ADMINISTRATED, ABSOLUTE DOSE 81MG/ADMINISTRATION
     Route: 042
     Dates: start: 20231114, end: 20231212
  3. OMEPRAZOL TEVA [OMEPRAZOLE] [Concomitant]
     Indication: Gastrooesophageal reflux disease
     Dosage: CHRONIC MEDICATION
     Route: 048
  4. PERINPA [Concomitant]
     Indication: Hypertension
     Dosage: CHRONIC MEDICATION
     Route: 048
  5. ATORVASTATIN CALCIUM [Concomitant]
     Active Substance: ATORVASTATIN CALCIUM
     Indication: Dyslipidaemia
     Dosage: CHRONIC MEDICATION
     Route: 048

REACTIONS (3)
  - Peripheral artery thrombosis [Recovered/Resolved]
  - Liver function test increased [Recovering/Resolving]
  - Off label use [Unknown]

NARRATIVE: CASE EVENT DATE: 20240102
